FAERS Safety Report 10300234 (Version 2)
Quarter: 2014Q3

REPORT INFORMATION
  Report Type: Report from Study
  Country: US (occurrence: US)
  Receive Date: 20140711
  Receipt Date: 20140718
  Transmission Date: 20150326
  Serious: Yes (Death)
  Sender: FDA-Public Use
  Company Number: US-PFIZER INC-2014191639

PATIENT
  Age: 43 Year
  Sex: Male

DRUGS (10)
  1. HYDROCORTISONE. [Concomitant]
     Active Substance: HYDROCORTISONE
     Indication: BLOOD CORTISOL DECREASED
     Dosage: UNK
     Dates: start: 20031111
  2. GENOTROPIN [Suspect]
     Active Substance: SOMATROPIN
     Indication: ASTROCYTOMA
     Dosage: INJECTABLE; 0.4 MG, UNK
     Dates: start: 20100917
  3. ANDRODERM [Concomitant]
     Active Substance: TESTOSTERONE
     Indication: BLOOD LUTEINISING HORMONE DECREASED
     Dosage: UNK
     Dates: start: 20111107
  4. ANDRODERM [Concomitant]
     Active Substance: TESTOSTERONE
     Indication: BLOOD FOLLICLE STIMULATING HORMONE DECREASED
  5. SYNTHROID [Concomitant]
     Active Substance: LEVOTHYROXINE SODIUM
     Indication: PRIMARY HYPOTHYROIDISM
  6. TRILEPTAL [Concomitant]
     Active Substance: OXCARBAZEPINE
     Indication: CONVULSION
  7. TRILEPTAL [Concomitant]
     Active Substance: OXCARBAZEPINE
     Indication: EPILEPSY
     Dosage: UNK
     Dates: start: 20010202
  8. TRILEPTAL [Concomitant]
     Active Substance: OXCARBAZEPINE
     Indication: CONVULSION
  9. SYNTHROID [Concomitant]
     Active Substance: LEVOTHYROXINE SODIUM
     Indication: BLOOD THYROID STIMULATING HORMONE DECREASED
     Dosage: UNK
     Dates: start: 20001117
  10. ANDRODERM [Concomitant]
     Active Substance: TESTOSTERONE
     Indication: HYPOGONADISM MALE

REACTIONS (1)
  - Death [Fatal]
